FAERS Safety Report 9218034 (Version 1)
Quarter: 2013Q2

REPORT INFORMATION
  Report Type: Report from Study
  Country: GB (occurrence: GB)
  Receive Date: 20130408
  Receipt Date: 20130408
  Transmission Date: 20140414
  Serious: Yes (Other)
  Sender: FDA-Public Use
  Company Number: GB-ROCHE-1206827

PATIENT
  Sex: 0

DRUGS (6)
  1. BEVACIZUMAB [Suspect]
     Indication: COLORECTAL CANCER METASTATIC
     Route: 065
  2. CAPECITABINE [Suspect]
     Indication: COLORECTAL CANCER METASTATIC
     Route: 065
  3. OXALIPLATIN [Suspect]
     Indication: COLORECTAL CANCER METASTATIC
     Route: 065
  4. 5-FU [Suspect]
     Indication: COLORECTAL CANCER METASTATIC
     Route: 065
  5. IRINOTECAN [Suspect]
     Indication: COLORECTAL CANCER METASTATIC
     Route: 065
  6. FOLINIC ACID [Suspect]
     Indication: COLORECTAL CANCER METASTATIC
     Route: 065

REACTIONS (23)
  - Wound dehiscence [Unknown]
  - Infection [Unknown]
  - Biliary tract disorder [Unknown]
  - Pleural effusion [Unknown]
  - Arrhythmia [Unknown]
  - Myocardial infarction [Unknown]
  - Liver abscess [Unknown]
  - Sepsis [Unknown]
  - Haematoma [Unknown]
  - Haemorrhage [Unknown]
  - Intestinal obstruction [Unknown]
  - Ileus [Unknown]
  - Hyperbilirubinaemia [Unknown]
  - Hypertension [Unknown]
  - Hypotension [Unknown]
  - Pericarditis [Unknown]
  - Urinary tract infection [Unknown]
  - Deep vein thrombosis [Unknown]
  - Pulmonary embolism [Unknown]
  - Coagulopathy [Unknown]
  - Anastomotic leak [Unknown]
  - Atrial thrombosis [Unknown]
  - Pneumonia [Unknown]
